FAERS Safety Report 10312934 (Version 4)
Quarter: 2014Q4

REPORT INFORMATION
  Report Type: Spontaneous
  Country: US (occurrence: US)
  Receive Date: 20140718
  Receipt Date: 20141031
  Transmission Date: 20150528
  Serious: No
  Sender: FDA-Public Use
  Company Number: US-PFIZER INC-2014195765

PATIENT
  Age: 79 Year
  Sex: Female

DRUGS (2)
  1. PREMARIN [Suspect]
     Active Substance: ESTROGENS, CONJUGATED
     Dosage: 0.625 HALF APPLICATOR FULL AT BED TIME,  3X/WEEK
  2. PREMARIN [Suspect]
     Active Substance: ESTROGENS, CONJUGATED
     Indication: UROGENITAL ATROPHY
     Dosage: 0.625 HALF APPLICATOR FULL AT BED TIME, 2X/WEEK
     Route: 067

REACTIONS (2)
  - Urinary incontinence [Recovered/Resolved]
  - Drug effect incomplete [Unknown]
